FAERS Safety Report 14315813 (Version 1)
Quarter: 2017Q4

REPORT INFORMATION
  Report Type: Spontaneous
  Country: US (occurrence: US)
  Receive Date: 20171221
  Receipt Date: 20171221
  Transmission Date: 20180321
  Serious: Yes (Other)
  Sender: FDA-Public Use
  Company Number: US-AMGEN-USASP2017186785

PATIENT
  Age: 81 Year
  Sex: Female

DRUGS (11)
  1. ENBREL [Suspect]
     Active Substance: ETANERCEPT
     Indication: RHEUMATOID ARTHRITIS
     Dosage: 50 MG, QWK
     Route: 065
     Dates: start: 2007
  2. MTX [Concomitant]
     Active Substance: METHOTREXATE SODIUM
     Dosage: 2 MG, UNK
  3. CHLORTHALIDONE. [Concomitant]
     Active Substance: CHLORTHALIDONE
     Indication: BLOOD PRESSURE ABNORMAL
     Dosage: UNK
  4. ATORVASTATIN [Concomitant]
     Active Substance: ATORVASTATIN
     Indication: BLOOD CHOLESTEROL
     Dosage: 10 MG, QD
  5. FUROSEMIDE. [Concomitant]
     Active Substance: FUROSEMIDE
     Dosage: UNK
  6. TEKTURNA [Concomitant]
     Active Substance: ALISKIREN HEMIFUMARATE
     Indication: BLOOD PRESSURE ABNORMAL
     Dosage: UNK
     Dates: start: 201705
  7. RESTASIS [Concomitant]
     Active Substance: CYCLOSPORINE
     Dosage: UNK
  8. ZANTAC [Concomitant]
     Active Substance: RANITIDINE HYDROCHLORIDE
     Indication: GASTROOESOPHAGEAL REFLUX DISEASE
     Dosage: UNK
  9. PREMARIN [Concomitant]
     Active Substance: ESTROGENS, CONJUGATED
     Dosage: 0.6 UNK
  10. FOLIC ACID. [Concomitant]
     Active Substance: FOLIC ACID
     Dosage: UNK
  11. LYRICA [Concomitant]
     Active Substance: PREGABALIN
     Dosage: UNK
     Dates: end: 201712

REACTIONS (12)
  - Spinal pain [Unknown]
  - Spinal operation [Unknown]
  - Visual impairment [Not Recovered/Not Resolved]
  - Weight decreased [Unknown]
  - Vertigo [Unknown]
  - Dysgraphia [Unknown]
  - Gait inability [Unknown]
  - Hypophagia [Unknown]
  - Nausea [Unknown]
  - Confusional state [Unknown]
  - Mobility decreased [Unknown]
  - Disorientation [Unknown]

NARRATIVE: CASE EVENT DATE: 201707
